FAERS Safety Report 5369534-X (Version None)
Quarter: 2007Q2

REPORT INFORMATION
  Report Type: 
  Country: None (occurrence: None)
  Receive Date: 20070625
  Receipt Date: 20070621
  Transmission Date: 20071010
  Serious: Yes (Other)
  Sender: FDA-Public Use
  Company Number: B0474950A

PATIENT
  Age: 8 Year
  Sex: Female
  Weight: 26 kg

DRUGS (4)
  1. RELENZA [Suspect]
     Indication: INFLUENZA
     Dosage: 10MG TWICE PER DAY
     Route: 055
     Dates: start: 20070602, end: 20070604
  2. MUCODYNE [Concomitant]
     Route: 048
  3. ASVERIN [Concomitant]
     Route: 048
  4. CALONAL [Concomitant]
     Route: 048

REACTIONS (3)
  - ABNORMAL BEHAVIOUR [None]
  - EUPHORIC MOOD [None]
  - HALLUCINATION [None]
